FAERS Safety Report 19658270 (Version 1)
Quarter: 2021Q3

REPORT INFORMATION
  Report Type: Other
  Country: JP (occurrence: JP)
  Receive Date: 20210805
  Receipt Date: 20210805
  Transmission Date: 20211014
  Serious: Yes (Death)
  Sender: FDA-Public Use
  Company Number: JP-RENATA LIMITED-2114654

PATIENT
  Age: 5 Decade
  Sex: Female
  Weight: 84.5 kg

DRUGS (9)
  1. CLOMIPRAMINE [Suspect]
     Active Substance: CLOMIPRAMINE
     Route: 065
  2. LEVOMEPROMAZINE [Suspect]
     Active Substance: LEVOMEPROMAZINE
     Route: 065
  3. DEXTROMETHORPHAN [Suspect]
     Active Substance: DEXTROMETHORPHAN
     Route: 065
  4. PROMETHAZINE [Suspect]
     Active Substance: PROMETHAZINE HYDROCHLORIDE
     Route: 065
  5. FLUNITRAZEPAM [Suspect]
     Active Substance: FLUNITRAZEPAM
     Route: 065
  6. ACETAMINOPHEN. [Concomitant]
     Active Substance: ACETAMINOPHEN
     Route: 065
  7. ESTAZOLAM. [Suspect]
     Active Substance: ESTAZOLAM
     Route: 065
  8. ALCOHOL. [Suspect]
     Active Substance: ALCOHOL
     Route: 065
  9. RISPERIDONE. [Suspect]
     Active Substance: RISPERIDONE
     Indication: ALCOHOLISM
     Route: 065

REACTIONS (6)
  - Respiratory depression [Fatal]
  - Toxicity to various agents [Fatal]
  - Depressed level of consciousness [Fatal]
  - Overdose [Fatal]
  - Drug interaction [Fatal]
  - Product use in unapproved indication [Unknown]
